FAERS Safety Report 24278293 (Version 2)
Quarter: 2024Q3

REPORT INFORMATION
  Report Type: Spontaneous
  Country: US (occurrence: None)
  Receive Date: 20240903
  Receipt Date: 20240906
  Transmission Date: 20241016
  Serious: No
  Sender: ASTRAZENECA
  Company Number: 2024A199567

PATIENT
  Age: 57 Year
  Sex: Female

DRUGS (9)
  1. PRILOSEC OTC [Suspect]
     Active Substance: OMEPRAZOLE MAGNESIUM
     Indication: Gastrooesophageal reflux disease
     Dosage: 1 TABLET, 1 /DAY (STARTED 3 WEEKS AGO)
     Route: 048
     Dates: start: 202407
  2. PRILOSEC OTC [Suspect]
     Active Substance: OMEPRAZOLE MAGNESIUM
     Indication: Nausea
     Dosage: 1 TABLET, 1 /DAY (STARTED 3 WEEKS AGO)
     Route: 048
     Dates: start: 202407
  3. PRILOSEC OTC [Suspect]
     Active Substance: OMEPRAZOLE MAGNESIUM
     Indication: Abdominal distension
     Dosage: 1 TABLET, 1 /DAY (STARTED 3 WEEKS AGO)
     Route: 048
     Dates: start: 202407
  4. PRILOSEC OTC [Suspect]
     Active Substance: OMEPRAZOLE MAGNESIUM
     Indication: Gastrooesophageal reflux disease
     Dosage: 1 TABLET, 2 /DAY (1 PRILOSEC OTC TABLET IN MORNING AND 1 TABLET 1/2 HOUR BEFORE DINNER)
     Route: 048
  5. PRILOSEC OTC [Suspect]
     Active Substance: OMEPRAZOLE MAGNESIUM
     Indication: Nausea
     Dosage: 1 TABLET, 2 /DAY (1 PRILOSEC OTC TABLET IN MORNING AND 1 TABLET 1/2 HOUR BEFORE DINNER)
     Route: 048
  6. PRILOSEC OTC [Suspect]
     Active Substance: OMEPRAZOLE MAGNESIUM
     Indication: Abdominal distension
     Dosage: 1 TABLET, 2 /DAY (1 PRILOSEC OTC TABLET IN MORNING AND 1 TABLET 1/2 HOUR BEFORE DINNER)
     Route: 048
  7. PRILOSEC OTC [Suspect]
     Active Substance: OMEPRAZOLE MAGNESIUM
     Indication: Gastrooesophageal reflux disease
     Route: 048
  8. PRILOSEC OTC [Suspect]
     Active Substance: OMEPRAZOLE MAGNESIUM
     Indication: Nausea
     Route: 048
  9. PRILOSEC OTC [Suspect]
     Active Substance: OMEPRAZOLE MAGNESIUM
     Indication: Abdominal distension
     Route: 048

REACTIONS (5)
  - Diarrhoea [Not Recovered/Not Resolved]
  - Drug ineffective for unapproved indication [Unknown]
  - Incorrect product administration duration [Unknown]
  - Off label use [Unknown]
  - Prescribed overdose [Unknown]

NARRATIVE: CASE EVENT DATE: 20240701
